FAERS Safety Report 10945589 (Version 1)
Quarter: 2015Q1

REPORT INFORMATION
  Report Type: Spontaneous
  Country: US (occurrence: US)
  Receive Date: 20150323
  Receipt Date: 20150323
  Transmission Date: 20150721
  Serious: No
  Sender: FDA-Public Use
  Company Number: US-ASTRAZENECA-2015SE24164

PATIENT
  Sex: Male

DRUGS (1)
  1. SYMBICORT [Suspect]
     Active Substance: BUDESONIDE\FORMOTEROL FUMARATE DIHYDRATE
     Dosage: 2 PUFFS BID
     Route: 055
     Dates: start: 201502

REACTIONS (3)
  - Device misuse [Unknown]
  - Circumstance or information capable of leading to medication error [Unknown]
  - Malaise [Unknown]

NARRATIVE: CASE EVENT DATE: 2015
